FAERS Safety Report 18185998 (Version 1)
Quarter: 2020Q3

REPORT INFORMATION
  Report Type: Spontaneous
  Country: DE (occurrence: DE)
  Receive Date: 20200824
  Receipt Date: 20200824
  Transmission Date: 20201103
  Serious: Yes (Hospitalization)
  Sender: FDA-Public Use
  Company Number: DE-TEVA-2020-DE-1816937

PATIENT
  Age: 80 Year
  Sex: Male

DRUGS (11)
  1. METAMIZOL [Concomitant]
     Active Substance: METAMIZOLE SODIUM
     Dosage: 30 GTT, 4X, DROP
  2. HYDROCHLOROTHIAZID [Concomitant]
     Active Substance: HYDROCHLOROTHIAZIDE
     Dosage: 25 MILLIGRAM DAILY; 1?0?0?0
  3. FOLSAURE [Concomitant]
     Active Substance: FOLIC ACID
     Dosage: 5 MG, SATURDAYS
  4. ACETYLSALICYLSAURE [Concomitant]
     Active Substance: ASPIRIN
     Dosage: 100 MILLIGRAM DAILY; 1?0?0?0
  5. PANTOPRAZOL [Concomitant]
     Active Substance: PANTOPRAZOLE SODIUM
     Dosage: 80 MILLIGRAM DAILY; 1?0?1?0
  6. VIGANTOLETTEN [Concomitant]
     Active Substance: CHOLECALCIFEROL
     Dosage: 1000 IU (INTERNATIONAL UNIT) DAILY; 1?0?0?0
  7. PREDNISOLON [Interacting]
     Active Substance: PREDNISOLONE
     Dosage: 1 MILLIGRAM DAILY; 1?0?0?0
  8. ZOLPIDEM [Concomitant]
     Active Substance: ZOLPIDEM TARTRATE
     Dosage: 5 MILLIGRAM DAILY; AT NIGHT
  9. METHOTREXAT [Suspect]
     Active Substance: METHOTREXATE
     Dosage: 10 MG, ON FRIDAYS
  10. RAMIPRIL. [Concomitant]
     Active Substance: RAMIPRIL
     Dosage: 5 MILLIGRAM DAILY; 1?0?0?0
  11. MAGALDRAT [Concomitant]
     Active Substance: MAGALDRATE
     Dosage: 1.6 MILLIGRAM DAILY; 0?0?0?1

REACTIONS (2)
  - Labelled drug-drug interaction medication error [Unknown]
  - Haematochezia [Recovering/Resolving]

NARRATIVE: CASE EVENT DATE: 20200601
